FAERS Safety Report 13515034 (Version 2)
Quarter: 2017Q4

REPORT INFORMATION
  Report Type: Report from Study
  Country: US (occurrence: US)
  Receive Date: 20170504
  Receipt Date: 20171115
  Transmission Date: 20180320
  Serious: No
  Sender: FDA-Public Use
  Company Number: PHEH2017US013320

PATIENT
  Sex: Female

DRUGS (2)
  1. ILARIS [Suspect]
     Active Substance: CANAKINUMAB
     Dosage: UNK, (EVERY 4 WEEKS)UNK
     Route: 065
     Dates: start: 20171107
  2. ILARIS [Suspect]
     Active Substance: CANAKINUMAB
     Indication: PRODUCT USED FOR UNKNOWN INDICATION
     Dosage: UNK, (EVERY 4 WEEKS)
     Route: 065
     Dates: start: 20171005

REACTIONS (2)
  - Inappropriate schedule of drug administration [Unknown]
  - Injection site pain [Unknown]
